FAERS Safety Report 4533064-5 (Version None)
Quarter: 2004Q4

REPORT INFORMATION
  Report Type: 
  Country: None (occurrence: None)
  Receive Date: 20041210
  Receipt Date: 20040830
  Transmission Date: 20050328
  Serious: No
  Sender: FDA-Public Use
  Company Number: 2004-00443

PATIENT
  Age: 49 Year
  Sex: Female
  Weight: 73.5 kg

DRUGS (1)
  1. VELCADE [Suspect]
     Indication: MULTIPLE MYELOMA
     Dosage: IV BOLUS
     Route: 040

REACTIONS (3)
  - CHILLS [None]
  - PAIN [None]
  - PYREXIA [None]
